FAERS Safety Report 18532552 (Version 1)
Quarter: 2020Q4

REPORT INFORMATION
  Report Type: Spontaneous
  Country: US (occurrence: US)
  Receive Date: 20201123
  Receipt Date: 20201123
  Transmission Date: 20210114
  Serious: Yes (Other)
  Sender: FDA-Public Use
  Company Number: US-LUPIN PHARMACEUTICALS INC.-2020-09145

PATIENT
  Age: 62 Year
  Sex: Female

DRUGS (12)
  1. VANCOMYCIN [Suspect]
     Active Substance: VANCOMYCIN
     Indication: INFLUENZA
  2. HYDROXYCHLOROQUINE [Suspect]
     Active Substance: HYDROXYCHLOROQUINE
     Indication: INFLUENZA
     Dosage: 200 MILLIGRAM, BID
     Route: 048
     Dates: start: 2020
  3. LEVOFLOXACIN. [Suspect]
     Active Substance: LEVOFLOXACIN
     Indication: COVID-19
     Dosage: 750 MILLIGRAM, QD (STOPPED)
     Route: 042
     Dates: start: 2020
  4. METRONIDAZOLE. [Suspect]
     Active Substance: METRONIDAZOLE
     Indication: SKIN ULCER
     Dosage: 500 MILLIGRAM, TID
     Route: 048
     Dates: start: 20200413
  5. OSELTAMIVIR [Suspect]
     Active Substance: OSELTAMIVIR
     Indication: COVID-19
     Dosage: 75 MILLIGRAM, BID
     Route: 048
     Dates: start: 2020
  6. HYDROXYCHLOROQUINE [Suspect]
     Active Substance: HYDROXYCHLOROQUINE
     Indication: COVID-19
     Dosage: 400 MILLIGRAM, BID
     Route: 048
     Dates: start: 2020
  7. LEVOFLOXACIN. [Suspect]
     Active Substance: LEVOFLOXACIN
     Indication: INFLUENZA
  8. VANCOMYCIN [Suspect]
     Active Substance: VANCOMYCIN
     Indication: SKIN ULCER
     Dosage: 1 GRAM, QD
     Route: 042
     Dates: start: 20200413
  9. METRONIDAZOLE. [Suspect]
     Active Substance: METRONIDAZOLE
     Indication: COVID-19
  10. OSELTAMIVIR [Suspect]
     Active Substance: OSELTAMIVIR
     Indication: INFLUENZA
  11. VANCOMYCIN [Suspect]
     Active Substance: VANCOMYCIN
     Indication: COVID-19
  12. METRONIDAZOLE. [Suspect]
     Active Substance: METRONIDAZOLE
     Indication: INFLUENZA

REACTIONS (1)
  - Off label use [Unknown]
